FAERS Safety Report 13503889 (Version 3)
Quarter: 2017Q3

REPORT INFORMATION
  Report Type: Spontaneous
  Country: US (occurrence: US)
  Receive Date: 20170502
  Receipt Date: 20170711
  Transmission Date: 20171127
  Serious: Yes (Other)
  Sender: FDA-Public Use
  Company Number: US-SMITH AND NEPHEW, INC-2017SMT00257

PATIENT
  Sex: Male
  Weight: 90.7 kg

DRUGS (10)
  1. LISINOPRIL. [Concomitant]
     Active Substance: LISINOPRIL
     Dosage: 10 MG, 1X/DAY
  2. FISH OIL [Concomitant]
     Active Substance: FISH OIL
  3. RED YEAST RICE [Concomitant]
     Active Substance: DIETARY SUPPLEMENT
  4. EFFEXOR [Concomitant]
     Active Substance: VENLAFAXINE HYDROCHLORIDE
     Dosage: 75 MG, 1X/DAY
  5. COLLAGEN [Suspect]
     Active Substance: COLLAGEN
     Indication: WOUND
     Route: 061
  6. AMBIEN [Concomitant]
     Active Substance: ZOLPIDEM TARTRATE
     Dosage: 5 MG, 1X/DAY AT BEDTIME
  7. ASPIRIN. [Concomitant]
     Active Substance: ASPIRIN
     Dosage: 81 MG, 1X/DAY
  8. PRILOSEC [Concomitant]
     Active Substance: OMEPRAZOLE MAGNESIUM
     Dosage: 20 MG, 1X/DAY
  9. REGRANEX [Suspect]
     Active Substance: BECAPLERMIN
     Indication: WOUND
     Dosage: UNK, 1X/DAY FOR 12 HOURS ON 12 HOURS OFF
     Route: 061
     Dates: start: 20170215
  10. SILVER SOLUTION [Suspect]
     Active Substance: SILVER
     Indication: WOUND
     Route: 061

REACTIONS (3)
  - Wound infection staphylococcal [Recovered/Resolved]
  - Streptococcal infection [Recovered/Resolved]
  - Drug ineffective for unapproved indication [Not Recovered/Not Resolved]
